FAERS Safety Report 6243388-1 (Version None)
Quarter: 2009Q2

REPORT INFORMATION
  Report Type: 
  Country: None (occurrence: None)
  Receive Date: 20090622
  Receipt Date: 20090622
  Transmission Date: 20091009
  Serious: Yes (Other)
  Sender: FDA-Public Use
  Company Number: None

PATIENT
  Age: 40 Year
  Sex: Female
  Weight: 58.9676 kg

DRUGS (1)
  1. THYROID TAB [Suspect]
     Indication: HYPOTHYROIDISM
     Dates: start: 20090615, end: 20090620

REACTIONS (3)
  - DRUG EFFECT DECREASED [None]
  - HYPOTHYROIDISM [None]
  - PRODUCT TASTE ABNORMAL [None]
